FAERS Safety Report 15995571 (Version 2)
Quarter: 2019Q1

REPORT INFORMATION
  Report Type: Spontaneous
  Country: FR (occurrence: FR)
  Receive Date: 20190222
  Receipt Date: 20190301
  Transmission Date: 20190418
  Serious: Yes (Hospitalization)
  Sender: FDA-Public Use
  Company Number: FR-B.I. PHARMACEUTICALS,INC./RIDGEFIELD-2019-BI-007036

PATIENT
  Age: 84 Year
  Sex: Male

DRUGS (2)
  1. PRADAXA [Suspect]
     Active Substance: DABIGATRAN ETEXILATE MESYLATE
     Indication: ATRIAL FIBRILLATION
     Route: 048
     Dates: start: 2016, end: 201812
  2. PRADAXA [Suspect]
     Active Substance: DABIGATRAN ETEXILATE MESYLATE
     Route: 048
     Dates: start: 20190128, end: 20190210

REACTIONS (5)
  - Leg amputation [Unknown]
  - Activated partial thromboplastin time prolonged [Unknown]
  - Anticoagulation drug level increased [Unknown]
  - Haematuria [Recovering/Resolving]
  - Blood fibrinogen decreased [Unknown]

NARRATIVE: CASE EVENT DATE: 20181218
